FAERS Safety Report 21507549 (Version 1)
Quarter: 2022Q4

REPORT INFORMATION
  Report Type: Spontaneous
  Country: US (occurrence: US)
  Receive Date: 20221026
  Receipt Date: 20221026
  Transmission Date: 20230113
  Serious: No
  Sender: FDA-Public Use
  Company Number: US-BAYER-2022A141066

PATIENT
  Sex: Female

DRUGS (1)
  1. MIRENA [Suspect]
     Active Substance: LEVONORGESTREL
     Dosage: 20?G/DAY
     Route: 015
     Dates: start: 202008

REACTIONS (4)
  - Menstruation irregular [None]
  - Heavy menstrual bleeding [None]
  - Uterine pain [Not Recovered/Not Resolved]
  - Hypomenorrhoea [None]
